FAERS Safety Report 9471241 (Version 1)
Quarter: 2013Q3

REPORT INFORMATION
  Report Type: Spontaneous
  Country: US (occurrence: None)
  Receive Date: 20130816
  Receipt Date: 20130816
  Transmission Date: 20140515
  Serious: Yes (Life-Threatening, Hospitalization, Other)
  Sender: FDA-Public Use
  Company Number: 54973 AE #1484

PATIENT
  Age: 9 Month
  Sex: Male

DRUGS (1)
  1. HYLAND^S TEETHING TABLETS [Suspect]

REACTIONS (3)
  - Convulsion [None]
  - Autism [None]
  - Developmental delay [None]
